FAERS Safety Report 7136017-6 (Version None)
Quarter: 2010Q4

REPORT INFORMATION
  Report Type: 
  Country: None (occurrence: None)
  Receive Date: 20101204
  Receipt Date: 20101130
  Transmission Date: 20110411
  Serious: Yes (Other)
  Sender: FDA-Public Use
  Company Number: US-BAYER-2010-000443

PATIENT

DRUGS (1)
  1. DROSPIRENONE + ETHINYLESTRADIOL 20A?G (24+4) [Suspect]
     Dosage: UNK
     Dates: start: 20080814, end: 20090227

REACTIONS (2)
  - CHOLECYSTECTOMY [None]
  - GALLBLADDER DISORDER [None]
